FAERS Safety Report 8983912 (Version 1)
Quarter: 2012Q4

REPORT INFORMATION
  Report Type: Spontaneous
  Country: US (occurrence: None)
  Receive Date: 20121218
  Receipt Date: 20121218
  Transmission Date: 20130627
  Serious: Yes (Death)
  Sender: FDA-Public Use
  Company Number: None

PATIENT
  Age: 53 Year
  Sex: Female
  Weight: 53.52 kg

DRUGS (3)
  1. TELAPREVIR [Suspect]
  2. PEGASYS [Suspect]
  3. RIBAVIRIN [Suspect]

REACTIONS (9)
  - Anaemia [None]
  - Fatigue [None]
  - Weight decreased [None]
  - Dyspnoea [None]
  - Oedema peripheral [None]
  - Respiratory failure [None]
  - Pleural effusion [None]
  - Right ventricular failure [None]
  - Lung adenocarcinoma [None]
